FAERS Safety Report 8424438-0 (Version None)
Quarter: 2012Q2

REPORT INFORMATION
  Report Type: 
  Country: None (occurrence: None)
  Receive Date: 20120609
  Receipt Date: 20120607
  Transmission Date: 20120825
  Serious: Yes (Hospitalization)
  Sender: FDA-Public Use
  Company Number: US-TEVA-341880USA

PATIENT
  Age: 73 Year
  Sex: Female
  Weight: 76.7 kg

DRUGS (2)
  1. RITUXIMAB [Suspect]
     Indication: CHRONIC LYMPHOCYTIC LEUKAEMIA
     Dosage: 26.3929 UNKNOWN;
     Route: 042
     Dates: start: 20110511, end: 20110830
  2. TREANDA [Suspect]
     Indication: CHRONIC LYMPHOCYTIC LEUKAEMIA
     Dosage: 6.25 UNKNOWN;
     Route: 042
     Dates: start: 20110511, end: 20110830

REACTIONS (3)
  - URINARY TRACT INFECTION [None]
  - PLEURAL EFFUSION [None]
  - DYSPNOEA [None]
